FAERS Safety Report 8964265 (Version 1)
Quarter: 2012Q4

REPORT INFORMATION
  Report Type: 
  Country: US (occurrence: US)
  Receive Date: 20121214
  Receipt Date: 20121214
  Transmission Date: 20130627
  Serious: No
  Sender: FDA-Public Use
  Company Number: US-GLAXOSMITHKLINE-A0955262A

PATIENT
  Age: 74 Year
  Sex: Male

DRUGS (5)
  1. AVODART [Suspect]
     Indication: DYSURIA
     Dosage: 1CAP Per day
     Route: 048
     Dates: start: 20100817, end: 20111115
  2. COZAAR [Concomitant]
  3. COREG [Concomitant]
  4. LIPIDIL [Concomitant]
  5. PROTONIX [Concomitant]

REACTIONS (6)
  - Rash [Not Recovered/Not Resolved]
  - Breast tenderness [Unknown]
  - Breast enlargement [Unknown]
  - Breast induration [Unknown]
  - Dysphonia [Unknown]
  - Nipple disorder [Unknown]
